FAERS Safety Report 22367183 (Version 1)
Quarter: 2023Q2

REPORT INFORMATION
  Report Type: Spontaneous
  Country: ES (occurrence: ES)
  Receive Date: 20230525
  Receipt Date: 20230525
  Transmission Date: 20230721
  Serious: Yes (Hospitalization)
  Sender: FDA-Public Use
  Company Number: None

PATIENT
  Age: 46 Year
  Sex: Female

DRUGS (2)
  1. IBUPROFEN [Suspect]
     Active Substance: IBUPROFEN
     Indication: Pain
     Dosage: 600 MG 1-1-1 03/06/2019 - 07/06/2019, 23/08/2017 - 27/08/2017, 21/08/2019 - 20/06/2020, IBUPROFENO (
     Route: 065
     Dates: start: 20190603, end: 20200620
  2. DEXKETOPROFEN [Suspect]
     Active Substance: DEXKETOPROFEN
     Indication: Pain
     Dosage: 25 MG 1-1-1 26/10/2016 - 30/10/2016, 22/08/2016 - 29/08/2016, 04/01/2019 - 08/01/2019, DEXKETOPROFEN
     Route: 065
     Dates: start: 20161126, end: 20190108

REACTIONS (1)
  - Glomerulosclerosis [Not Recovered/Not Resolved]

NARRATIVE: CASE EVENT DATE: 20220316
